FAERS Safety Report 7882859-9 (Version None)
Quarter: 2011Q4

REPORT INFORMATION
  Report Type: 
  Country: None (occurrence: None)
  Receive Date: 20111101
  Receipt Date: 20110621
  Transmission Date: 20120403
  Serious: No
  Sender: FDA-Public Use
  Company Number: US-AMGEN-USASP2011009019

PATIENT
  Age: 73 Year
  Sex: Female
  Weight: 90.703 kg

DRUGS (2)
  1. ENBREL [Suspect]
     Indication: RHEUMATOID ARTHRITIS
     Dosage: 50 MG, QWK
     Dates: start: 20110210
  2. ENBREL [Suspect]
     Dates: start: 20110201

REACTIONS (4)
  - INGROWING NAIL [None]
  - DYSGEUSIA [None]
  - INJECTION SITE REACTION [None]
  - DRUG INEFFECTIVE [None]
